FAERS Safety Report 4589318-X (Version None)
Quarter: 2005Q1

REPORT INFORMATION
  Report Type: 
  Country: None (occurrence: None)
  Receive Date: 20050216
  Receipt Date: 20050126
  Transmission Date: 20050727
  Serious: Yes (Life-Threatening)
  Sender: FDA-Public Use
  Company Number: USA050189375

PATIENT
  Age: 79 Year
  Sex: Female

DRUGS (11)
  1. CYMBALTA [Suspect]
     Dosage: 60 MG DAY
     Dates: start: 20041102, end: 20041201
  2. HUMULIN [Concomitant]
  3. LANOXIN (DIGOXIN-SANDOZ) [Concomitant]
  4. VASOTEC [Concomitant]
  5. REGLAN [Concomitant]
  6. PREVACID [Concomitant]
  7. ZOCOR (SIMVASTATIN RATIOPHARM) [Concomitant]
  8. NITRODUR II (GLYCERYL TRINITRATE) [Concomitant]
  9. EVISTA [Concomitant]
  10. CIOUMADIN (WARFARIN SODIUM) [Concomitant]
  11. MULTIVITAMINS WITH IRON [Concomitant]

REACTIONS (3)
  - CONFUSIONAL STATE [None]
  - EATING DISORDER [None]
  - LETHARGY [None]
